FAERS Safety Report 8160201-6 (Version None)
Quarter: 2012Q1

REPORT INFORMATION
  Report Type: 
  Country: None (occurrence: None)
  Receive Date: 20120223
  Receipt Date: 20120210
  Transmission Date: 20120608
  Serious: Yes (Life-Threatening, Other)
  Sender: FDA-Public Use
  Company Number: DE-ALEXION-A201200255

PATIENT
  Sex: Male

DRUGS (13)
  1. FERRLECIT [Concomitant]
     Indication: ANAEMIA
     Dosage: 30 MG, UNK
     Route: 042
     Dates: start: 20120124, end: 20120203
  2. LEVETIRACETAM [Concomitant]
     Indication: CONVULSION
     Dosage: 150 MG, BID
     Route: 048
     Dates: start: 20111202
  3. SOLIRIS [Suspect]
     Indication: HAEMOLYTIC URAEMIC SYNDROME
     Dosage: 600 MG, QW
     Route: 042
     Dates: start: 20111115, end: 20111122
  4. VARITECT [Concomitant]
     Indication: EXPOSURE TO COMMUNICABLE DISEASE
     Dosage: 25 IE/KG 1 HOUR INFUSION
     Route: 042
     Dates: start: 20120203, end: 20120203
  5. RAMIPRIL [Concomitant]
     Indication: HYPERTENSION
     Dosage: 1.25 MG, QD
     Route: 048
     Dates: start: 20111201
  6. SOLIRIS [Suspect]
     Dosage: 600 MG, SINGLE
     Route: 042
     Dates: start: 20120127
  7. METOPROLOL [Concomitant]
     Indication: HYPERTENSION
     Dosage: 2X 23, 75MG
     Route: 048
     Dates: start: 20111201
  8. SODIUM BICARBONATE [Concomitant]
     Dosage: 3X10ML
     Dates: start: 20120101
  9. SOLIRIS [Suspect]
     Dosage: 300 MG, SINGLE
     Route: 042
     Dates: start: 20120203
  10. EPOGEN [Concomitant]
     Indication: ANAEMIA
     Dosage: 2000 IE
     Route: 042
     Dates: start: 20120124, end: 20120203
  11. VITAMIN D [Concomitant]
     Dosage: 500 IE
     Route: 048
     Dates: start: 20101217
  12. NIFEDIPINE [Concomitant]
     Indication: HYPERTENSION
     Dosage: 6X8MG
     Route: 048
     Dates: start: 20111201
  13. LOSARTAN POTASSIUM [Concomitant]
     Indication: HYPERTENSION
     Dosage: 5 MG, BID
     Route: 048
     Dates: start: 20111201

REACTIONS (5)
  - CARDIAC ARREST [None]
  - EXPOSURE TO COMMUNICABLE DISEASE [None]
  - BLOOD PRESSURE INCREASED [None]
  - VOMITING [None]
  - LOSS OF CONSCIOUSNESS [None]
